FAERS Safety Report 23520018 (Version 1)
Quarter: 2024Q1

REPORT INFORMATION
  Report Type: Spontaneous
  Country: SE (occurrence: SE)
  Receive Date: 20240214
  Receipt Date: 20240214
  Transmission Date: 20240410
  Serious: Yes (Other)
  Sender: FDA-Public Use
  Company Number: SE-ABBVIE-5633543

PATIENT
  Sex: Female

DRUGS (1)
  1. RINVOQ [Suspect]
     Active Substance: UPADACITINIB
     Indication: Crohn^s disease
     Dosage: START DATE: A FEW YEARS AGO
     Route: 048

REACTIONS (3)
  - Gastric bypass [Unknown]
  - Diarrhoea [Unknown]
  - Gastrointestinal disorder [Unknown]
